FAERS Safety Report 6022502-7 (Version None)
Quarter: 2008Q4

REPORT INFORMATION
  Report Type: 
  Country: None (occurrence: None)
  Receive Date: 20081230
  Receipt Date: 20081217
  Transmission Date: 20090506
  Serious: Yes (Other)
  Sender: FDA-Public Use
  Company Number: PHHY2008GB32615

PATIENT
  Sex: Male

DRUGS (2)
  1. CLOZARIL [Suspect]
     Indication: SCHIZOPHRENIA
     Dosage: 650 MG DAILY
     Dates: start: 19970114
  2. CLOZARIL [Suspect]
     Dosage: 450 MG, QD

REACTIONS (1)
  - ELECTROCARDIOGRAM QT PROLONGED [None]
